FAERS Safety Report 22119007 (Version 2)
Quarter: 2023Q2

REPORT INFORMATION
  Report Type: Spontaneous
  Country: IT (occurrence: IT)
  Receive Date: 20230321
  Receipt Date: 20230623
  Transmission Date: 20230721
  Serious: Yes (Death, Hospitalization, Other)
  Sender: FDA-Public Use
  Company Number: IT-SUN PHARMACEUTICAL INDUSTRIES LTD-2023R1-382134

PATIENT
  Sex: Male

DRUGS (7)
  1. CARBOPLATIN [Suspect]
     Active Substance: CARBOPLATIN
     Indication: Pleural mesothelioma malignant
     Dosage: UNK
     Route: 065
     Dates: start: 201908, end: 202001
  2. CISPLATIN [Suspect]
     Active Substance: CISPLATIN
     Indication: Therapeutic embolisation
     Dosage: UNK
     Route: 065
  3. DOXORUBICIN [Suspect]
     Active Substance: DOXORUBICIN
     Indication: Therapeutic embolisation
     Dosage: UNK
     Route: 065
     Dates: start: 201908, end: 201909
  4. PEMETREXED [Suspect]
     Active Substance: PEMETREXED
     Indication: Pleural mesothelioma malignant
     Dosage: 6 CYCLE
     Route: 065
     Dates: start: 201908, end: 202001
  5. ACETYLCYSTEINE [Suspect]
     Active Substance: ACETYLCYSTEINE
     Indication: Pleural mesothelioma malignant
     Dosage: 600 MILLIGRAM, QD
     Route: 048
  6. VITAMIN D [Suspect]
     Active Substance: VITAMIN D NOS
     Indication: Pleural mesothelioma malignant
     Route: 048
  7. VITAMIN C [Suspect]
     Active Substance: ASCORBIC ACID
     Indication: Pleural mesothelioma malignant
     Dosage: 3 DOSAGE FORM, QD
     Route: 042

REACTIONS (7)
  - Disease progression [Fatal]
  - Drug ineffective [Fatal]
  - Acute kidney injury [Recovered/Resolved]
  - Fatigue [Recovering/Resolving]
  - Nausea [Recovering/Resolving]
  - Weight decreased [Recovering/Resolving]
  - Vomiting [Recovering/Resolving]

NARRATIVE: CASE EVENT DATE: 20200601
